FAERS Safety Report 10061953 (Version 1)
Quarter: 2014Q2

REPORT INFORMATION
  Report Type: Spontaneous
  Country: JP (occurrence: JP)
  Receive Date: 20140407
  Receipt Date: 20140407
  Transmission Date: 20141212
  Serious: Yes (Death)
  Sender: FDA-Public Use
  Company Number: JP-ASTELLAS-2014JP003155

PATIENT
  Age: 64 Year
  Sex: Male

DRUGS (12)
  1. FUNGUARD [Suspect]
     Indication: BRONCHOPULMONARY ASPERGILLOSIS
     Dosage: 100 MG, UNKNOWN/D
     Route: 065
  2. FUNGUARD [Suspect]
     Dosage: 150 MG, UNKNOWN/D
     Route: 065
  3. FUNGUARD [Suspect]
     Dosage: 300 MG, UNKNOWN/D
     Route: 065
  4. PREDNISOLONE [Concomitant]
     Dosage: 20 MG, UNKNOWN/D
     Route: 048
  5. CYCLOSPORIN [Concomitant]
     Dosage: 50 MG, UNKNOWN/D
     Route: 048
  6. MEROPENEM [Concomitant]
     Dosage: UNK
     Route: 065
  7. AZITHROMYCIN [Concomitant]
     Dosage: UNK
     Route: 065
  8. GANCICLOVIR [Concomitant]
     Dosage: UNK
     Route: 065
  9. SULFAMETHOXAZOLE AND TRIMETHOPRIM [Concomitant]
     Dosage: 1 G, UNKNOWN/D
     Route: 065
  10. SULFAMETHOXAZOLE AND TRIMETHOPRIM [Concomitant]
     Dosage: 9 G, UNKNOWN/D
     Route: 065
  11. METHYLPREDNISOLONE [Concomitant]
     Dosage: 1000 MG, UNKNOWN/D
     Route: 065
  12. METHYLPREDNISOLONE [Concomitant]
     Dosage: 1000 MG, UNKNOWN/D
     Route: 065

REACTIONS (2)
  - Drug ineffective [Unknown]
  - Bronchopulmonary aspergillosis [Fatal]
